FAERS Safety Report 22362268 (Version 1)
Quarter: 2023Q2

REPORT INFORMATION
  Report Type: Spontaneous
  Country: HR (occurrence: HR)
  Receive Date: 20230524
  Receipt Date: 20230524
  Transmission Date: 20230721
  Serious: Yes (Death)
  Sender: FDA-Public Use
  Company Number: HR-PFIZER INC-PV202300090861

PATIENT
  Age: 84 Year
  Sex: Male

DRUGS (2)
  1. SOLU-MEDROL [Suspect]
     Active Substance: METHYLPREDNISOLONE SODIUM SUCCINATE
     Dosage: UNK
     Dates: start: 20230404
  2. REMDESIVIR [Suspect]
     Active Substance: REMDESIVIR
     Dosage: UNK
     Dates: start: 20230404

REACTIONS (1)
  - Death [Fatal]

NARRATIVE: CASE EVENT DATE: 20230505
